FAERS Safety Report 6940543-X (Version None)
Quarter: 2010Q3

REPORT INFORMATION
  Report Type: 
  Country: None (occurrence: None)
  Receive Date: 20100825
  Receipt Date: 20100820
  Transmission Date: 20110219
  Serious: Yes (Hospitalization)
  Sender: FDA-Public Use
  Company Number: US-GILEAD-2010-0031197

PATIENT
  Sex: Female
  Weight: 122.58 kg

DRUGS (12)
  1. LETAIRIS [Suspect]
     Indication: PULMONARY ARTERIAL HYPERTENSION
     Route: 048
     Dates: start: 20091208
  2. ADCIRCA [Concomitant]
  3. OXYGEN [Concomitant]
  4. FUROSEMIDE [Concomitant]
  5. BENICAR HCT [Concomitant]
  6. FELODIPINE [Concomitant]
  7. SIMVASTATIN [Concomitant]
  8. SPIRIVA [Concomitant]
  9. PROMETHAZINE W/ CODEINE [Concomitant]
  10. PREDNISONE [Concomitant]
  11. CALTRATE [Concomitant]
  12. POTASSIUM CHLORIDE [Concomitant]

REACTIONS (1)
  - GASTROENTERITIS [None]
